FAERS Safety Report 23154679 (Version 1)
Quarter: 2023Q4

REPORT INFORMATION
  Report Type: Spontaneous
  Country: US (occurrence: US)
  Receive Date: 20231107
  Receipt Date: 20231107
  Transmission Date: 20240110
  Serious: No
  Sender: FDA-Public Use
  Company Number: US-PFIZER INC-202300354028

PATIENT
  Age: 54 Year
  Sex: Female

DRUGS (8)
  1. PAXLOVID [Suspect]
     Active Substance: NIRMATRELVIR\RITONAVIR
     Indication: COVID-19 treatment
     Dosage: UNK
     Dates: start: 20231022, end: 20231028
  2. METHIMAZOLE [Concomitant]
     Active Substance: METHIMAZOLE
     Dates: start: 20010915
  3. DIETARY SUPPLEMENT\HERBALS [Concomitant]
     Active Substance: DIETARY SUPPLEMENT\HERBALS
     Dates: start: 20231012
  4. AIRBORNE [Concomitant]
     Active Substance: HERBALS\MINERALS\VITAMINS
     Dates: start: 20231012
  5. MUCINEX D [Concomitant]
     Active Substance: GUAIFENESIN\PSEUDOEPHEDRINE HYDROCHLORIDE
     Dates: start: 20231021
  6. VITAMIN D3 [Concomitant]
     Active Substance: CHOLECALCIFEROL
  7. VITAMIN K [Concomitant]
     Active Substance: PHYTONADIONE
  8. NIGHT TIME DAY TIME COLD AND FLU [Concomitant]
     Active Substance: ACETAMINOPHEN\DEXTROMETHORPHAN HYDROBROMIDE\DOXYLAMINE SUCCINATE\PHENYLEPHRINE
     Dates: start: 20231021

REACTIONS (3)
  - COVID-19 [Recovering/Resolving]
  - Disease recurrence [Recovering/Resolving]
  - Inappropriate schedule of product administration [Unknown]

NARRATIVE: CASE EVENT DATE: 20231031
